FAERS Safety Report 8552509-7 (Version None)
Quarter: 2012Q3

REPORT INFORMATION
  Report Type: 
  Country: None (occurrence: None)
  Receive Date: 20120719
  Receipt Date: 20120710
  Transmission Date: 20120928
  Serious: Yes (Hospitalization)
  Sender: FDA-Public Use
  Company Number: DSA_58518_2012

PATIENT
  Age: 45 Year
  Sex: Female

DRUGS (1)
  1. FLAGYL [Suspect]
     Indication: PRODUCT USED FOR UNKNOWN INDICATION
     Dosage: (500 MG (FREQUENCY UNSPECIFIED) ORAL)
     Route: 048

REACTIONS (2)
  - COORDINATION ABNORMAL [None]
  - GAIT DISTURBANCE [None]
